FAERS Safety Report 17524346 (Version 1)
Quarter: 2020Q1

REPORT INFORMATION
  Report Type: Spontaneous
  Country: GB (occurrence: GB)
  Receive Date: 20200311
  Receipt Date: 20200311
  Transmission Date: 20200409
  Serious: Yes (Life-Threatening)
  Sender: FDA-Public Use
  Company Number: GB-TEVA-2020-GB-1196509

PATIENT
  Age: 85 Year
  Sex: Female
  Weight: 94 kg

DRUGS (12)
  1. CLOPIDOGREL [Concomitant]
     Active Substance: CLOPIDOGREL BISULFATE
     Indication: ILL-DEFINED DISORDER
     Dosage: 1 DOSAGE FORMS DAILY;
     Dates: start: 20191009, end: 20200102
  2. CLARITHROMYCIN. [Concomitant]
     Active Substance: CLARITHROMYCIN
     Dosage: TO REPLACE THE ONE DROPPED , 1 DF
     Dates: start: 20200217
  3. OMEPRAZOLE. [Concomitant]
     Active Substance: OMEPRAZOLE
     Dosage: 1 DOSAGE FORMS DAILY;
     Dates: start: 20190215
  4. BUMETANIDE. [Concomitant]
     Active Substance: BUMETANIDE
     Dosage: 1 DOSAGE FORMS DAILY;
     Dates: start: 20190215
  5. NITROFURANTOIN. [Suspect]
     Active Substance: NITROFURANTOIN
     Indication: URINARY TRACT INFECTION
     Dosage: 200 MG
     Dates: start: 20200216
  6. ATORVASTATIN [Concomitant]
     Active Substance: ATORVASTATIN
     Dosage: 1 DOSAGE FORMS DAILY;
     Dates: start: 20190215
  7. MEMANTINE. [Concomitant]
     Active Substance: MEMANTINE
     Dosage: 1 DF
     Dates: start: 20190215
  8. SERTRALINE [Concomitant]
     Active Substance: SERTRALINE HYDROCHLORIDE
     Dosage: 1 DOSAGE FORMS DAILY;
     Dates: start: 20190215
  9. PREGABALIN. [Concomitant]
     Active Substance: PREGABALIN
     Dosage: 2 DF
     Dates: start: 20190729
  10. PARACETAMOL [Concomitant]
     Active Substance: ACETAMINOPHEN
     Dosage: 8 DF
     Dates: start: 20190215
  11. CASSIA [Concomitant]
     Dosage: TAKE 1 OR 2 AT NIGHT
     Dates: start: 20190215
  12. SODIUM CROMOGLICATE [Concomitant]
     Active Substance: CROMOLYN SODIUM
     Dosage: ONE OR TWO DROPS INTO EACH EYE UP TO FOUR TIMES...
     Dates: start: 20190215

REACTIONS (6)
  - Oxygen saturation decreased [Recovering/Resolving]
  - Pruritus [Unknown]
  - Hypersensitivity [Unknown]
  - Wheezing [Recovering/Resolving]
  - Skin warm [Unknown]
  - Rash erythematous [Recovering/Resolving]

NARRATIVE: CASE EVENT DATE: 20190217
